FAERS Safety Report 6856317-4 (Version None)
Quarter: 2010Q3

REPORT INFORMATION
  Report Type: 
  Country: None (occurrence: None)
  Receive Date: 20100719
  Receipt Date: 20100716
  Transmission Date: 20110219
  Serious: Yes (Death, Other)
  Sender: FDA-Public Use
  Company Number: PHHY2009CA58143

PATIENT
  Sex: Male

DRUGS (2)
  1. EXJADE [Suspect]
     Indication: MYELOFIBROSIS
     Dosage: 1500 MG, QD
     Route: 048
     Dates: start: 20091219
  2. EXJADE [Suspect]
     Indication: CHELATION THERAPY

REACTIONS (3)
  - DEATH [None]
  - RASH [None]
  - RENAL DISORDER [None]
